FAERS Safety Report 14387095 (Version 7)
Quarter: 2020Q2

REPORT INFORMATION
  Report Type: Spontaneous
  Country: US (occurrence: US)
  Receive Date: 20180115
  Receipt Date: 20200520
  Transmission Date: 20200713
  Serious: Yes (Other)
  Sender: FDA-Public Use
  Company Number: US-SA-2017SA176924

PATIENT
  Age: 45 Year
  Sex: Female
  Weight: 105.23 kg

DRUGS (30)
  1. TAXOTERE [Suspect]
     Active Substance: DOCETAXEL
     Indication: OVARIAN CANCER
     Dosage: UNK UNK, Q3W
     Route: 042
     Dates: start: 20050519, end: 20050519
  2. TAXOTERE [Suspect]
     Active Substance: DOCETAXEL
     Indication: COLON CANCER
     Dosage: UNK UNK, Q3W
     Route: 042
     Dates: start: 20050714, end: 20050714
  3. DARIFENACIN. [Concomitant]
     Active Substance: DARIFENACIN
     Dosage: UNK UNK,UNK
     Route: 065
     Dates: start: 19970101, end: 20050601
  4. LEVOTHYROXINE. [Concomitant]
     Active Substance: LEVOTHYROXINE
     Dosage: UNK UNK,UNK
     Route: 065
     Dates: start: 20000102
  5. SYNTHROID [Concomitant]
     Active Substance: LEVOTHYROXINE SODIUM
     Dosage: UNK UNK,UNK
     Route: 065
     Dates: start: 20000102
  6. ASPIRIN [ACETYLSALICYLIC ACID] [Concomitant]
     Active Substance: ASPIRIN
     Dosage: UNK UNK, UNK
     Route: 065
  7. NORVASC [Concomitant]
     Active Substance: AMLODIPINE BESYLATE
     Dosage: UNK UNK,UNK
     Route: 065
     Dates: start: 20000102
  8. LISINOPRIL. [Concomitant]
     Active Substance: LISINOPRIL
     Dosage: UNK UNK,UNK
     Route: 065
  9. NEURONTIN [Concomitant]
     Active Substance: GABAPENTIN
     Dosage: UNK UNK,UNK
     Route: 065
     Dates: start: 20000102, end: 20050601
  10. CARBOPLATIN. [Concomitant]
     Active Substance: CARBOPLATIN
     Indication: OVARIAN CANCER
  11. LISINOPRIL. [Concomitant]
     Active Substance: LISINOPRIL
     Dosage: UNK UNK,UNK
     Route: 065
     Dates: start: 20000101, end: 20050601
  12. DARIFENACIN. [Concomitant]
     Active Substance: DARIFENACIN
     Dosage: UNK UNK,UNK
     Route: 065
  13. PROTONIX [OMEPRAZOLE] [Concomitant]
     Active Substance: OMEPRAZOLE
     Dosage: UNK UNK,UNK
     Route: 065
     Dates: start: 19970101, end: 20050601
  14. AMLODIPINE BESILATE [Concomitant]
     Active Substance: AMLODIPINE BESYLATE
     Dosage: UNK UNK,UNK
     Route: 065
     Dates: start: 20000102
  15. GLIPIZIDE. [Concomitant]
     Active Substance: GLIPIZIDE
     Dosage: UNK UNK,UNK
     Route: 065
     Dates: start: 20000102
  16. VITAMIN D3 [Concomitant]
     Active Substance: CHOLECALCIFEROL
     Dosage: UNK UNK, UNK
     Route: 065
  17. PARAPLATIN [Concomitant]
     Active Substance: CARBOPLATIN
     Indication: COLON CANCER
     Dosage: UNK UNK, UNK
  18. METOPROLOL. [Concomitant]
     Active Substance: METOPROLOL
     Dosage: UNK UNK,UNK
     Route: 065
     Dates: start: 19970101, end: 20050601
  19. TAXOL [Concomitant]
     Active Substance: PACLITAXEL
     Indication: COLON CANCER
     Dosage: UNK UNK, UNK
     Route: 065
  20. TAXOL [Concomitant]
     Active Substance: PACLITAXEL
     Indication: OVARIAN CANCER
  21. SANAFLEX [Concomitant]
     Dosage: UNK
     Dates: start: 20050101
  22. POTASSIUM [Concomitant]
     Active Substance: POTASSIUM
     Dosage: UNK UNK,UNK
     Route: 065
     Dates: start: 20000102, end: 20050601
  23. ZANAFLEX [Concomitant]
     Active Substance: TIZANIDINE HYDROCHLORIDE
     Dosage: UNK UNK,UNK
     Route: 065
     Dates: start: 20000102
  24. CRESTOR [Concomitant]
     Active Substance: ROSUVASTATIN CALCIUM
     Dosage: UNK UNK,UNK
     Route: 065
     Dates: start: 20000102
  25. ATARAX [ALPRAZOLAM] [Concomitant]
     Active Substance: ALPRAZOLAM
     Dosage: UNK UNK, UNK
     Route: 065
  26. PARAPLATIN [Concomitant]
     Active Substance: CARBOPLATIN
     Indication: OVARIAN CANCER
  27. CARBOPLATIN. [Concomitant]
     Active Substance: CARBOPLATIN
     Indication: COLON CANCER
  28. DETROL [Concomitant]
     Active Substance: TOLTERODINE TARTRATE
     Dosage: UNK UNK,UNK
     Route: 065
     Dates: start: 19970101, end: 20050101
  29. DETROL [Concomitant]
     Active Substance: TOLTERODINE TARTRATE
     Dosage: UNK UNK,UNK
     Route: 065
  30. ZOFRAN [Concomitant]
     Active Substance: ONDANSETRON HYDROCHLORIDE
     Dosage: UNK UNK, UNK
     Route: 065

REACTIONS (2)
  - Alopecia [Recovering/Resolving]
  - Psychological trauma [Unknown]

NARRATIVE: CASE EVENT DATE: 20050801
